FAERS Safety Report 9272485 (Version 1)
Quarter: 2013Q2

REPORT INFORMATION
  Report Type: Report from Study
  Country: RU (occurrence: RU)
  Receive Date: 20130506
  Receipt Date: 20130506
  Transmission Date: 20140414
  Serious: Yes (Hospitalization, Congenital Anomaly)
  Sender: FDA-Public Use
  Company Number: RU-VIIV HEALTHCARE LIMITED-A1021940A

PATIENT
  Sex: Male
  Weight: 3 kg

DRUGS (4)
  1. LAMIVUDINE-HIV [Suspect]
     Indication: HIV INFECTION
     Route: 064
     Dates: start: 20120312
  2. PREZISTA [Suspect]
     Indication: ANTIRETROVIRAL THERAPY
     Route: 064
     Dates: start: 20120406
  3. FORTOVASE [Suspect]
     Indication: ANTIRETROVIRAL THERAPY
     Route: 064
     Dates: start: 20120312, end: 20120405
  4. NORVIR [Suspect]
     Indication: ANTIRETROVIRAL THERAPY
     Route: 064
     Dates: start: 20120312

REACTIONS (6)
  - Central nervous system lesion [Unknown]
  - Hypoxic-ischaemic encephalopathy [Unknown]
  - Necrotising colitis [Unknown]
  - Jaundice neonatal [Unknown]
  - Foetal exposure during pregnancy [Unknown]
  - Maternal drugs affecting foetus [None]
